FAERS Safety Report 25554188 (Version 2)
Quarter: 2025Q3

REPORT INFORMATION
  Report Type: Spontaneous
  Country: US (occurrence: US)
  Receive Date: 20250715
  Receipt Date: 20250812
  Transmission Date: 20251020
  Serious: Yes (Other)
  Sender: INCYTE
  Company Number: US-INCYTE CORPORATION-2025IN007672

PATIENT
  Age: 92 Year

DRUGS (1)
  1. JAKAFI [Suspect]
     Active Substance: RUXOLITINIB
     Indication: Waldenstrom^s macroglobulinaemia
     Dosage: 5 MILLIGRAM, BID

REACTIONS (4)
  - Atrial fibrillation [Not Recovered/Not Resolved]
  - Flatulence [Unknown]
  - Weight increased [Not Recovered/Not Resolved]
  - Off label use [Unknown]
